FAERS Safety Report 9984044 (Version 1)
Quarter: 2014Q1

REPORT INFORMATION
  Report Type: Report from Study
  Country: US (occurrence: US)
  Receive Date: 20140307
  Receipt Date: 20140307
  Transmission Date: 20141002
  Serious: No
  Sender: FDA-Public Use
  Company Number: US-ABBVIE-13P-163-1182294-00

PATIENT
  Age: 48 Year
  Sex: Female

DRUGS (15)
  1. HUMIRA [Suspect]
     Indication: PSORIATIC ARTHROPATHY
     Dates: start: 20131004, end: 201312
  2. HUMIRA [Suspect]
     Dates: start: 20131213
  3. TAMBOCOR [Concomitant]
     Indication: HEART RATE INCREASED
  4. LASIX [Concomitant]
     Indication: SWELLING
     Dosage: MONDAY, WEDNESDAY AND FRIDAYS
  5. LASIX [Concomitant]
     Dosage: TUESDAY, THURSDAY , SATURDAY AND SUNDAYS
  6. MULTIVITAMIN [Concomitant]
     Indication: PRODUCT USED FOR UNKNOWN INDICATION
     Dosage: TWO
  7. CALCIUM + VITAMIN D [Concomitant]
     Indication: PRODUCT USED FOR UNKNOWN INDICATION
  8. LEXAPRO [Concomitant]
     Indication: INSOMNIA
     Dosage: AT BEDTIME
  9. MELATONIN [Concomitant]
     Indication: INSOMNIA
     Dosage: AT BEDTIME
  10. METHOTREXATE [Concomitant]
     Indication: PSORIATIC ARTHROPATHY
     Dosage: 4 TABS IN MORNING AN 4 TABS IN EVENING
  11. ASPIRIN [Concomitant]
     Indication: PRODUCT USED FOR UNKNOWN INDICATION
  12. TYLENOL ARTHRITIS [Concomitant]
     Indication: PAIN
  13. IBUPROFEN [Concomitant]
     Indication: PAIN
  14. VITAMIN C [Concomitant]
     Indication: NASOPHARYNGITIS
     Dosage: IN WINTER
  15. VITAMIN C [Concomitant]
     Indication: INFLUENZA
     Dosage: THE REST OF THE YEAR

REACTIONS (4)
  - Fatigue [Recovering/Resolving]
  - Rash [Recovering/Resolving]
  - Arthritis [Recovering/Resolving]
  - Drug effect decreased [Recovering/Resolving]
